FAERS Safety Report 4331777-1 (Version None)
Quarter: 2004Q2

REPORT INFORMATION
  Report Type: 
  Country: None (occurrence: None)
  Receive Date: 20040405
  Receipt Date: 20030721
  Transmission Date: 20050107
  Serious: No
  Sender: FDA-Public Use
  Company Number: US-GLAXOSMITHKLINE-A0418226A

PATIENT
  Age: 68 Year
  Sex: Male

DRUGS (6)
  1. FLOVENT [Suspect]
     Indication: ASTHMA
     Dosage: 220MCG TWICE PER DAY
     Route: 055
     Dates: start: 19990101
  2. FLONASE [Concomitant]
  3. PREVACID [Concomitant]
  4. LUMIGAN [Concomitant]
  5. RANITIDINE [Concomitant]
  6. FLOMAX [Concomitant]

REACTIONS (3)
  - LARYNX IRRITATION [None]
  - PHARMACEUTICAL PRODUCT COMPLAINT [None]
  - THROAT IRRITATION [None]
